FAERS Safety Report 11621659 (Version 1)
Quarter: 2015Q4

REPORT INFORMATION
  Report Type: Spontaneous
  Country: AR (occurrence: AR)
  Receive Date: 20151013
  Receipt Date: 20151013
  Transmission Date: 20160304
  Serious: Yes (Death, Other)
  Sender: FDA-Public Use
  Company Number: AR-AMGEN-ARGSP2015105657

PATIENT
  Age: 78 Year
  Sex: Female

DRUGS (1)
  1. ENBREL [Suspect]
     Active Substance: ETANERCEPT
     Indication: RHEUMATOID ARTHRITIS
     Dosage: 50 MG, WEEKLY
     Route: 065
     Dates: start: 20041115

REACTIONS (5)
  - Cardio-respiratory arrest [Fatal]
  - Depression [Unknown]
  - Pulmonary fibrosis [Unknown]
  - Senile dementia [Unknown]
  - Arthritis [Unknown]

NARRATIVE: CASE EVENT DATE: 20150625
